FAERS Safety Report 12771837 (Version 2)
Quarter: 2016Q4

REPORT INFORMATION
  Report Type: Report from Study
  Country: US (occurrence: US)
  Receive Date: 20160922
  Receipt Date: 20161020
  Transmission Date: 20170207
  Serious: Yes (Hospitalization)
  Sender: FDA-Public Use
  Company Number: US-PFIZER INC-3112949

PATIENT
  Age: 11 Year
  Sex: Female
  Weight: 37.1 kg

DRUGS (3)
  1. CYCLOPHOSPHAMIDE. [Suspect]
     Active Substance: CYCLOPHOSPHAMIDE
     Indication: NEUROBLASTOMA
     Dosage: TOTAL DOSE ADMINISTERED IN THE COURSE 1500 MG
     Dates: start: 20151027, end: 20151121
  2. CRIZOTINIB [Suspect]
     Active Substance: CRIZOTINIB
     Indication: NEUROBLASTOMA
     Dosage: TOTAL DOSE ADMINISTERED IN THE COURSE 7250 MG
     Dates: start: 20151027, end: 20151202
  3. TOPOTECAN HYDROCHLORIDE. [Suspect]
     Active Substance: TOPOTECAN HYDROCHLORIDE
     Indication: NEUROBLASTOMA
     Dosage: TOTAL DOSE ADMINISTERED THIS COURSE WAS 4.5 MG
     Dates: start: 20151027, end: 20151121

REACTIONS (3)
  - Lung infection [Recovering/Resolving]
  - Oesophagitis [Recovered/Resolved]
  - Oesophageal infection [Recovering/Resolving]

NARRATIVE: CASE EVENT DATE: 20151202
